FAERS Safety Report 18105226 (Version 2)
Quarter: 2020Q4

REPORT INFORMATION
  Report Type: Spontaneous
  Country: US (occurrence: US)
  Receive Date: 20200804
  Receipt Date: 20201210
  Transmission Date: 20210113
  Serious: No
  Sender: FDA-Public Use
  Company Number: US-SA-2020SA201173

PATIENT

DRUGS (10)
  1. OMEPRAZOLE. [Concomitant]
     Active Substance: OMEPRAZOLE
  2. DUPIXENT [Suspect]
     Active Substance: DUPILUMAB
     Dosage: 300 MG, QOW
     Route: 058
     Dates: start: 20200730
  3. DOXYCYCLINE HYCLATE. [Concomitant]
     Active Substance: DOXYCYCLINE HYCLATE
  4. LEVOTHYROXIN [Concomitant]
     Active Substance: LEVOTHYROXINE
  5. ANUCORT-HC [Concomitant]
     Active Substance: HYDROCORTISONE ACETATE
  6. LIOTHYRONINE [Concomitant]
     Active Substance: LIOTHYRONINE
  7. ACYCLOVIR [ACICLOVIR] [Concomitant]
     Active Substance: ACYCLOVIR
  8. DUPIXENT [Suspect]
     Active Substance: DUPILUMAB
     Indication: ASTHMA
     Dosage: UNK
     Route: 058
     Dates: start: 202006, end: 2020
  9. MONTELUKAST [Concomitant]
     Active Substance: MONTELUKAST SODIUM
  10. NP THYROID [Concomitant]
     Active Substance: LEVOTHYROXINE\LIOTHYRONINE

REACTIONS (5)
  - Inappropriate schedule of product administration [Unknown]
  - Pruritus [Not Recovered/Not Resolved]
  - Product dose omission issue [Unknown]
  - Pruritus [Unknown]
  - Swelling [Not Recovered/Not Resolved]

NARRATIVE: CASE EVENT DATE: 2020
